FAERS Safety Report 18398682 (Version 1)
Quarter: 2020Q4

REPORT INFORMATION
  Report Type: Spontaneous
  Country: US (occurrence: US)
  Receive Date: 20201019
  Receipt Date: 20201019
  Transmission Date: 20210114
  Serious: Yes (Hospitalization)
  Sender: FDA-Public Use
  Company Number: None

PATIENT
  Age: 88 Year
  Sex: Male

DRUGS (1)
  1. WARFARIN (WARFARIN NA (EXELAN) 5MG TAB) [Suspect]
     Active Substance: WARFARIN SODIUM
     Indication: ATRIAL FIBRILLATION
     Route: 048
     Dates: start: 20120118, end: 20200928

REACTIONS (9)
  - Haemoglobin decreased [None]
  - Gastric haemorrhage [None]
  - Faeces discoloured [None]
  - Melaena [None]
  - Duodenal ulcer [None]
  - Shock haemorrhagic [None]
  - Helicobacter infection [None]
  - Haematemesis [None]
  - Upper gastrointestinal haemorrhage [None]

NARRATIVE: CASE EVENT DATE: 20200911
